FAERS Safety Report 26062512 (Version 1)
Quarter: 2025Q4

REPORT INFORMATION
  Report Type: Spontaneous
  Country: CN (occurrence: CN)
  Receive Date: 20251119
  Receipt Date: 20251119
  Transmission Date: 20260118
  Serious: Yes (Other)
  Sender: ABBVIE
  Company Number: CN-ABBVIE-6552549

PATIENT
  Age: 75 Year
  Sex: Male

DRUGS (3)
  1. VENETOCLAX [Suspect]
     Active Substance: VENETOCLAX
     Indication: Myeloid leukaemia
     Dosage: 200 MILLIGRAM
     Route: 048
     Dates: start: 20250730, end: 20250730
  2. VENETOCLAX [Suspect]
     Active Substance: VENETOCLAX
     Indication: Myeloid leukaemia
     Dosage: 100 MILLIGRAM
     Route: 048
     Dates: start: 20250727, end: 20250729
  3. AZACITIDINE [Suspect]
     Active Substance: AZACITIDINE
     Indication: Myeloid leukaemia
     Dosage: 100 MILLIGRAM
     Route: 058
     Dates: start: 20250727, end: 20250803

REACTIONS (1)
  - Myelosuppression [Unknown]

NARRATIVE: CASE EVENT DATE: 20250807
